FAERS Safety Report 17767648 (Version 2)
Quarter: 2020Q4

REPORT INFORMATION
  Report Type: Spontaneous
  Country: DE (occurrence: DE)
  Receive Date: 20200511
  Receipt Date: 20201217
  Transmission Date: 20210113
  Serious: Yes (Hospitalization, Other)
  Sender: FDA-Public Use
  Company Number: DE-MYLANLABS-2020M1045610

PATIENT
  Age: 61 Year
  Sex: Male
  Weight: 108 kg

DRUGS (59)
  1. FINASTERID AUROBINDO [Concomitant]
     Dosage: 1-0-0
     Dates: start: 2016
  2. DIAZEPAM. [Concomitant]
     Active Substance: DIAZEPAM
     Dosage: UNK
     Dates: start: 201504, end: 2019
  3. DICLOFENAC [Concomitant]
     Active Substance: DICLOFENAC
     Dosage: UNK
     Dates: start: 201701
  4. ATORVASTATIN HEXAL [Concomitant]
     Active Substance: ATORVASTATIN
     Dosage: UNK
     Dates: start: 201411, end: 2014
  5. VALSARTAN DURA [Suspect]
     Active Substance: VALSARTAN
     Dosage: 1-0-0
     Dates: start: 2018, end: 2019
  6. METOPROLOLSUCCINAT AL [Concomitant]
     Active Substance: METOPROLOL SUCCINATE
     Dosage: 1-0-0
     Dates: start: 2002
  7. METRONIDAZOL AL [Concomitant]
     Dosage: UNK
     Dates: start: 2014
  8. ATORVASTATIN [Concomitant]
     Active Substance: ATORVASTATIN
     Dosage: UNK
     Dates: start: 201907, end: 2019
  9. ATORVASTATIN 1A PHARMA [Concomitant]
     Active Substance: ATORVASTATIN
     Dosage: UNK
     Dates: start: 201408, end: 2014
  10. FINASTERID AUROBINDO [Concomitant]
     Dosage: UNK
     Dates: start: 201705, end: 2019
  11. DOXYCYCLIN AL                      /00055702/ [Concomitant]
     Dosage: UNK
     Dates: start: 201504, end: 2015
  12. ASPIRIN. [Concomitant]
     Active Substance: ASPIRIN
     Dosage: 0-1-0
     Dates: start: 2002
  13. NITROLINGUAL [Concomitant]
     Active Substance: NITROGLYCERIN
     Dosage: UNK
     Dates: start: 201605, end: 2017
  14. TAMSULOSIN [Concomitant]
     Active Substance: TAMSULOSIN
     Dosage: UNK
     Dates: start: 201604, end: 2016
  15. ATORVASTATIN BASICS [Concomitant]
     Active Substance: ATORVASTATIN
     Dosage: UNK
     Dates: start: 201507, end: 2015
  16. ATORVASTATIN ABZ [Concomitant]
     Active Substance: ATORVASTATIN SODIUM
     Dosage: UNK
     Dates: start: 201805, end: 2018
  17. CIPROFLOXACIN AL [Concomitant]
     Active Substance: CIPROFLOXACIN
     Dosage: UNK
     Dates: start: 201406, end: 2014
  18. METRONIDAZOL                       /00012501/ [Concomitant]
     Active Substance: METRONIDAZOLE
     Dosage: UNK
     Dates: start: 201501, end: 2015
  19. VALSARTAN. [Suspect]
     Active Substance: VALSARTAN
     Dosage: 80 MILLIGRAM, QD
     Route: 048
     Dates: start: 201606, end: 2017
  20. DIAZEPAM-RATIOPHARM [Concomitant]
     Active Substance: DIAZEPAM
     Dosage: 10 MILLIGRAM PER MILLILITRE
     Route: 048
     Dates: start: 201312, end: 2017
  21. IBUPROFEN AL [Concomitant]
     Active Substance: IBUPROFEN
     Dosage: UNK
     Dates: start: 201504, end: 2015
  22. ATORVASTATIN ABZ [Concomitant]
     Active Substance: ATORVASTATIN SODIUM
     Dosage: 10 MG
     Route: 048
     Dates: start: 201312, end: 2018
  23. METOHEXAL                          /00376903/ [Concomitant]
     Active Substance: METOPROLOL SUCCINATE
     Dosage: UNK
     Dates: start: 201501, end: 2018
  24. CIPROFLOXACIN. [Concomitant]
     Active Substance: CIPROFLOXACIN
     Dosage: UNK
     Dates: start: 201501, end: 2015
  25. BECLOMETASON [Concomitant]
     Active Substance: BECLOMETHASONE DIPROPIONATE
     Dosage: UNK
     Dates: start: 201901, end: 2019
  26. BETAGALEN [Concomitant]
     Dosage: UNK
     Dates: start: 201908
  27. NOVAMINSULFON LICHTENSTEIN [Concomitant]
     Active Substance: METAMIZOLE SODIUM
     Dosage: UNK
     Dates: start: 201508, end: 2018
  28. METOPROLOLSUCCINAT STADA [Concomitant]
     Dosage: 95 MG
     Dates: start: 201401, end: 2015
  29. VALSARTAN. [Suspect]
     Active Substance: VALSARTAN
     Indication: HYPERTENSION
     Dosage: 80 MG, PER DAY
     Route: 048
     Dates: start: 201411, end: 2018
  30. VALSARTAN. [Suspect]
     Active Substance: VALSARTAN
     Indication: HYPERTENSION
     Dosage: 80 MG, PER DAY
     Route: 048
     Dates: start: 201811, end: 2019
  31. METOPROLOLSUCCINAT AL [Concomitant]
     Active Substance: METOPROLOL SUCCINATE
     Dosage: 95 MG
     Dates: start: 201404, end: 2017
  32. DIAZEPAM-RATIOPHARM [Concomitant]
     Active Substance: DIAZEPAM
     Dosage: 2-5 MG AS REQUIRED
     Route: 048
     Dates: start: 2000
  33. IBUPROFEN AL [Concomitant]
     Active Substance: IBUPROFEN
     Dosage: UNK
     Dates: start: 201707, end: 2017
  34. ATORVASTATIN ARISTO [Concomitant]
     Dosage: UNK
     Dates: start: 201503, end: 2016
  35. ATORVASTATIN [Concomitant]
     Active Substance: ATORVASTATIN
     Dosage: 0-0-1
     Dates: start: 2002
  36. NOVAMINSULFON 1 A PHARMA [Concomitant]
     Active Substance: METAMIZOLE SODIUM
     Dosage: UNK
     Dates: start: 201806, end: 2018
  37. METOPROLOL RATIOPHARM              /00376902/ [Concomitant]
     Active Substance: METOPROLOL TARTRATE
     Dosage: UNK
  38. DICLOFENAC [Concomitant]
     Active Substance: DICLOFENAC
     Dosage: UNK
     Dates: start: 201412
  39. VALSARTAN. [Suspect]
     Active Substance: VALSARTAN
     Dosage: 80 MILLIGRAM, QD
     Route: 048
     Dates: start: 201807
  40. BAYCUTEN HC [Concomitant]
     Dosage: UNK
     Dates: start: 201502, end: 2015
  41. CINNARIZIN DIMENHYDRINAT [Concomitant]
     Dosage: UNK
     Dates: start: 201705, end: 2017
  42. PARACODIN N                        /00063002/ [Concomitant]
     Dosage: UNK
     Dates: start: 201603, end: 2016
  43. CIPROFLOXACIN ARISTO [Concomitant]
     Active Substance: CIPROFLOXACIN HYDROCHLORIDE
     Dosage: UNK
     Dates: start: 201503, end: 2016
  44. VALSARTAN DURA [Suspect]
     Active Substance: VALSARTAN
     Indication: PRODUCT USED FOR UNKNOWN INDICATION
     Dosage: 80 MG, PER DAY
     Route: 048
     Dates: start: 201908, end: 2019
  45. VALSARTAN. [Suspect]
     Active Substance: VALSARTAN
     Dosage: 80 MILLIGRAM, QD
     Route: 048
     Dates: start: 201806, end: 2018
  46. DOXYCYCLIN 1A PHARMA [Concomitant]
     Active Substance: DOXYCYCLINE
     Dosage: UNK
     Dates: start: 201503, end: 2015
  47. CIPROFLOXACIN AL [Concomitant]
     Active Substance: CIPROFLOXACIN
     Dosage: UNK
     Dates: start: 2014
  48. CEFUROX BASICS SUN [Concomitant]
     Active Substance: CEFUROXIME AXETIL
     Dosage: UNK
     Dates: start: 201408, end: 2014
  49. VALSARTAN. [Suspect]
     Active Substance: VALSARTAN
     Dosage: 80 MILLIGRAM, QD
     Route: 048
     Dates: start: 201507, end: 2015
  50. VALSARTAN. [Suspect]
     Active Substance: VALSARTAN
     Indication: HYPERTENSION
     Dosage: 80 MG, PER DAY
     Route: 048
     Dates: start: 201311, end: 2014
  51. VALSACOR [Suspect]
     Active Substance: VALSARTAN
     Indication: HYPERTENSION
     Dosage: 80 MILLIGRAM, QD
     Route: 048
     Dates: start: 201811
  52. NITROLINGUAL [Concomitant]
     Active Substance: NITROGLYCERIN
     Dosage: UNK
     Dates: start: 201611
  53. PANTOPRAZOL TAD [Concomitant]
     Active Substance: PANTOPRAZOLE SODIUM
     Dosage: UNK
     Dates: start: 201412
  54. DICLOFENAC RATIOPHARM              /00372302/ [Concomitant]
     Active Substance: DICLOFENAC SODIUM
     Dosage: UNK
     Dates: start: 201701, end: 2017
  55. VOLTAREN RESINAT                   /00372302/ [Concomitant]
     Active Substance: DICLOFENAC SODIUM
     Dosage: UNK
     Dates: start: 201412
  56. VALSARTAN. [Suspect]
     Active Substance: VALSARTAN
     Indication: HYPERTENSION
     Dosage: 80 MG, PER DAY
     Route: 048
     Dates: start: 201712, end: 2018
  57. IBUPROFEN. [Concomitant]
     Active Substance: IBUPROFEN
     Dosage: UNK
     Dates: start: 201806, end: 2018
  58. METRONIDAZOL AL [Concomitant]
     Dosage: UNK
     Dates: start: 201406, end: 2014
  59. INFECTOTRIMET [Concomitant]
     Dosage: UNK
     Dates: start: 201604, end: 2016

REACTIONS (3)
  - Malignant melanoma stage I [Recovered/Resolved]
  - Product impurity [Unknown]
  - Malignant melanoma [Unknown]

NARRATIVE: CASE EVENT DATE: 201908
